FAERS Safety Report 12746109 (Version 1)
Quarter: 2016Q3

REPORT INFORMATION
  Report Type: Spontaneous
  Country: IN (occurrence: US)
  Receive Date: 20160914
  Receipt Date: 20160914
  Transmission Date: 20161109
  Serious: Yes (Other)
  Sender: FDA-Public Use
  Company Number: None

PATIENT
  Age: 62 Year
  Sex: Female
  Weight: 64.35 kg

DRUGS (5)
  1. HYPERTENSIVE MEDICINES [Concomitant]
  2. ALLERGY MEDICINE [Concomitant]
     Active Substance: DIPHENHYDRAMINE HYDROCHLORIDE
  3. NASALCROM [Suspect]
     Active Substance: CROMOLYN SODIUM
     Indication: HYPERSENSITIVITY
     Route: 055
     Dates: start: 20150331, end: 20160912
  4. BICOSULES [Concomitant]
  5. OG3 [Concomitant]

REACTIONS (3)
  - Blood pressure inadequately controlled [None]
  - Blood pressure increased [None]
  - Product label issue [None]

NARRATIVE: CASE EVENT DATE: 20160401
